FAERS Safety Report 4654755-1 (Version None)
Quarter: 2005Q2

REPORT INFORMATION
  Report Type: 
  Country: None (occurrence: None)
  Receive Date: 20050505
  Receipt Date: 20050505
  Transmission Date: 20051028
  Serious: Yes (Other)
  Sender: FDA-Public Use
  Company Number: None

PATIENT
  Sex: Male
  Weight: 127 kg

DRUGS (7)
  1. REMODULIN [Suspect]
     Indication: PULMONARY HYPERTENSION
     Dosage: 4NG/KG/MIN
     Dates: start: 20050110, end: 20050215
  2. LASIX [Concomitant]
  3. COUMADIN [Concomitant]
  4. TACLEER [Concomitant]
  5. KLOR-CON [Concomitant]
  6. ALDACTONE [Concomitant]
  7. ZAROXOLYN [Concomitant]

REACTIONS (4)
  - ERYTHEMA [None]
  - INJECTION SITE ERYTHEMA [None]
  - INJECTION SITE PAIN [None]
  - PAIN [None]
